FAERS Safety Report 11503215 (Version 1)
Quarter: 2015Q3

REPORT INFORMATION
  Report Type: Spontaneous
  Country: US (occurrence: US)
  Receive Date: 20150914
  Receipt Date: 20150914
  Transmission Date: 20151125
  Serious: No
  Sender: FDA-Public Use
  Company Number: US-ASTELLAS-2015US023001

PATIENT
  Age: 88 Year
  Sex: Male

DRUGS (2)
  1. XTANDI [Suspect]
     Active Substance: ENZALUTAMIDE
     Dosage: 40 MG, TWICE DAILY (ONE IN MORNING AND ONE IN EVENING)
     Route: 048
  2. XTANDI [Suspect]
     Active Substance: ENZALUTAMIDE
     Indication: PROSTATE CANCER
     Dosage: 80 MG, ONCE DAILY BY MOUTH
     Route: 048
     Dates: start: 20131228

REACTIONS (4)
  - Foreign body [Unknown]
  - Inappropriate schedule of drug administration [Unknown]
  - Underdose [Unknown]
  - Product size issue [Unknown]

NARRATIVE: CASE EVENT DATE: 20131228
